FAERS Safety Report 6733427-3 (Version None)
Quarter: 2010Q2

REPORT INFORMATION
  Report Type: 
  Country: None (occurrence: None)
  Receive Date: 20100520
  Receipt Date: 20100507
  Transmission Date: 20101027
  Serious: Yes (Hospitalization, Other)
  Sender: FDA-Public Use
  Company Number: BE-TYCO HEALTHCARE/MALLINCKRODT-T201001204

PATIENT
  Age: 65 Year
  Sex: Female

DRUGS (2)
  1. METHADOSE [Suspect]
     Indication: PAIN
     Dosage: 10 MG, TID
     Route: 048
  2. METHADOSE [Suspect]
     Dosage: 30 MG, TID
     Route: 048

REACTIONS (3)
  - DRUG DISPENSING ERROR [None]
  - DRUG TOXICITY [None]
  - LEUKOENCEPHALOPATHY [None]
